FAERS Safety Report 17099965 (Version 1)
Quarter: 2019Q4

REPORT INFORMATION
  Report Type: Report from Study
  Country: GB (occurrence: GB)
  Receive Date: 20191202
  Receipt Date: 20191202
  Transmission Date: 20200122
  Serious: Yes (Hospitalization)
  Sender: FDA-Public Use
  Company Number: GB-ASTRAZENECA-2019SF50499

PATIENT
  Age: 23076 Day
  Sex: Male
  Weight: 70.7 kg

DRUGS (1)
  1. DURVALUMAB. [Suspect]
     Active Substance: DURVALUMAB
     Indication: RENAL CELL CARCINOMA
     Route: 042
     Dates: start: 20190920, end: 20190920

REACTIONS (1)
  - Facial nerve disorder [Recovered/Resolved with Sequelae]

NARRATIVE: CASE EVENT DATE: 20191010
